FAERS Safety Report 8107568-2 (Version None)
Quarter: 2012Q1

REPORT INFORMATION
  Report Type: 
  Country: None (occurrence: None)
  Receive Date: 20120202
  Receipt Date: 20120125
  Transmission Date: 20120608
  Serious: Yes (Other)
  Sender: FDA-Public Use
  Company Number: PT-ROCHE-1033933

PATIENT
  Sex: Female

DRUGS (5)
  1. MABTHERA [Suspect]
     Dates: start: 20100101
  2. METHOTREXATE [Concomitant]
     Indication: RHEUMATOID ARTHRITIS
  3. MABTHERA [Suspect]
     Indication: RHEUMATOID ARTHRITIS
     Route: 041
     Dates: start: 20080101
  4. MABTHERA [Suspect]
     Dates: start: 20090101
  5. MABTHERA [Suspect]
     Dates: start: 20101223

REACTIONS (1)
  - THYMUS DISORDER [None]
